FAERS Safety Report 6636927-X (Version None)
Quarter: 2010Q1

REPORT INFORMATION
  Report Type: 
  Country: None (occurrence: None)
  Receive Date: 20100316
  Receipt Date: 20100309
  Transmission Date: 20100710
  Serious: Yes (Hospitalization)
  Sender: FDA-Public Use
  Company Number: IT-BRISTOL-MYERS SQUIBB COMPANY-15009541

PATIENT
  Age: 17 Year
  Sex: Female

DRUGS (5)
  1. BLEOMYCIN SULFATE [Suspect]
     Indication: HODGKIN'S DISEASE
     Route: 042
     Dates: start: 20091023
  2. DOXORUBICIN [Suspect]
     Indication: HODGKIN'S DISEASE
     Route: 042
     Dates: start: 20091023
  3. VELBE [Suspect]
     Indication: HODGKIN'S DISEASE
     Route: 042
     Dates: start: 20091023
  4. DETICENE [Suspect]
     Indication: HODGKIN'S DISEASE
     Route: 042
     Dates: start: 20091023
  5. LEUPRORELIN [Concomitant]
     Route: 042
     Dates: start: 20091023, end: 20091023

REACTIONS (2)
  - AGRANULOCYTOSIS [None]
  - NEUTROPENIA [None]
